FAERS Safety Report 11984266 (Version 2)
Quarter: 2016Q1

REPORT INFORMATION
  Report Type: Report from Study
  Country: JP (occurrence: JP)
  Receive Date: 20160201
  Receipt Date: 20160211
  Transmission Date: 20160526
  Serious: Yes (Hospitalization)
  Sender: FDA-Public Use
  Company Number: JP-ROCHE-1699955

PATIENT
  Age: 57 Year
  Sex: Female
  Weight: 53.6 kg

DRUGS (27)
  1. AMLODIPINE [Suspect]
     Active Substance: AMLODIPINE BESYLATE
     Indication: HYPERTENSION
     Route: 048
     Dates: start: 20151104
  2. LANDSEN [Concomitant]
     Active Substance: CLONAZEPAM
     Indication: INSOMNIA
     Dosage: BEFORE SLEEP
     Route: 048
     Dates: start: 20151218
  3. RANMARK [Concomitant]
     Active Substance: DENOSUMAB
     Indication: METASTASES TO BONE
     Route: 058
     Dates: start: 20150526
  4. MEROPENEM. [Concomitant]
     Active Substance: MEROPENEM
     Indication: PYREXIA
     Route: 041
     Dates: start: 20151223, end: 20151228
  5. FAMOTIDINE. [Suspect]
     Active Substance: FAMOTIDINE
     Indication: NON-SMALL CELL LUNG CANCER
     Route: 042
     Dates: start: 20160107
  6. MAGMITT [Suspect]
     Active Substance: MAGNESIUM OXIDE
     Indication: NON-SMALL CELL LUNG CANCER
     Route: 042
     Dates: start: 20160107
  7. GENINAX [Suspect]
     Active Substance: GARENOXACIN MESYLATE
     Indication: PYREXIA
     Route: 048
     Dates: start: 20151229
  8. NEO-MINOPHAGEN C [Concomitant]
     Active Substance: AMMONIUM GLYCYRRHIZATE
     Indication: HEPATIC FUNCTION ABNORMAL
     Route: 041
     Dates: start: 20151223, end: 20151228
  9. TRASTUZUMAB EMTANSINE [Suspect]
     Active Substance: ADO-TRASTUZUMAB EMTANSINE
     Indication: NON-SMALL CELL LUNG CANCER
     Route: 042
     Dates: start: 20160107
  10. DENOTAS [Suspect]
     Active Substance: CALCIUM CARBONATE\CHOLECALCIFEROL\MAGNESIUM CARBONATE
     Indication: PRODUCT USED FOR UNKNOWN INDICATION
     Route: 048
     Dates: start: 20150526
  11. FAMOTIDINE. [Suspect]
     Active Substance: FAMOTIDINE
     Indication: CHRONIC GASTRITIS
     Route: 048
     Dates: start: 20151104
  12. LOXOPROFEN [Suspect]
     Active Substance: LOXOPROFEN
     Indication: CANCER PAIN
     Route: 048
     Dates: start: 20151217
  13. MAGMITT [Suspect]
     Active Substance: MAGNESIUM OXIDE
     Indication: CONSTIPATION
     Route: 048
     Dates: start: 20111104
  14. CALONAL [Concomitant]
     Active Substance: ACETAMINOPHEN
     Indication: CANCER PAIN
     Dosage: SINGLE USE
     Route: 048
     Dates: start: 20160113
  15. LASIX [Concomitant]
     Active Substance: FUROSEMIDE
     Indication: ACUTE KIDNEY INJURY
     Route: 042
     Dates: start: 20160116, end: 20160122
  16. TRASTUZUMAB EMTANSINE [Suspect]
     Active Substance: ADO-TRASTUZUMAB EMTANSINE
     Indication: NON-SMALL CELL LUNG CANCER
     Route: 042
     Dates: start: 20151217
  17. LIXIANA [Suspect]
     Active Substance: EDOXABAN TOSILATE MONOHYDRATE
     Indication: NON-SMALL CELL LUNG CANCER
     Route: 042
     Dates: start: 20160107
  18. MAXIPIME [Concomitant]
     Active Substance: CEFEPIME HYDROCHLORIDE
     Route: 065
     Dates: start: 20151219, end: 20151222
  19. DENOTAS [Suspect]
     Active Substance: CALCIUM CARBONATE\CHOLECALCIFEROL\MAGNESIUM CARBONATE
     Indication: NON-SMALL CELL LUNG CANCER
     Route: 042
     Dates: start: 20160107
  20. LOXOPROFEN [Suspect]
     Active Substance: LOXOPROFEN
     Indication: NON-SMALL CELL LUNG CANCER
     Route: 042
     Dates: start: 20160107
  21. LIXIANA [Suspect]
     Active Substance: EDOXABAN TOSILATE MONOHYDRATE
     Indication: DEEP VEIN THROMBOSIS
     Route: 048
     Dates: start: 20151229
  22. AMLODIPINE [Suspect]
     Active Substance: AMLODIPINE BESYLATE
     Indication: NON-SMALL CELL LUNG CANCER
     Route: 042
     Dates: start: 20160107
  23. NEO-MINOPHAGEN C [Concomitant]
     Active Substance: AMMONIUM GLYCYRRHIZATE
     Route: 041
     Dates: start: 20160112, end: 20160119
  24. GENINAX [Suspect]
     Active Substance: GARENOXACIN MESYLATE
     Indication: NON-SMALL CELL LUNG CANCER
     Route: 042
     Dates: start: 20160107
  25. ACELIO [Concomitant]
     Active Substance: ACETAMINOPHEN
     Indication: PYREXIA
     Dosage: SINGLE USE AND ONE TIME 500-1000MG
     Route: 042
     Dates: start: 20160117, end: 20160122
  26. POTASSIUM CHLORIDE. [Concomitant]
     Active Substance: POTASSIUM CHLORIDE
     Indication: HYPOKALAEMIA
     Route: 042
     Dates: start: 20160118, end: 20160124
  27. MEROPENEM. [Concomitant]
     Active Substance: MEROPENEM
     Route: 041
     Dates: start: 20160115, end: 20160119

REACTIONS (2)
  - Acute kidney injury [Recovered/Resolved]
  - Lung infection [Recovering/Resolving]

NARRATIVE: CASE EVENT DATE: 20160112
